FAERS Safety Report 23140359 (Version 2)
Quarter: 2023Q4

REPORT INFORMATION
  Report Type: Spontaneous
  Country: ES (occurrence: ES)
  Receive Date: 20231102
  Receipt Date: 20231214
  Transmission Date: 20240110
  Serious: No
  Sender: FDA-Public Use
  Company Number: ES-SCALL-2023-EME-136771

PATIENT
  Sex: Male

DRUGS (1)
  1. DUTASTERIDE [Suspect]
     Active Substance: DUTASTERIDE
     Indication: Hair disorder
     Route: 065

REACTIONS (2)
  - Product use in unapproved indication [Unknown]
  - Product storage error [Unknown]
